FAERS Safety Report 7210596-2 (Version None)
Quarter: 2010Q4

REPORT INFORMATION
  Report Type: 
  Country: None (occurrence: None)
  Receive Date: 20101126
  Receipt Date: 20100921
  Transmission Date: 20110411
  Serious: No
  Sender: FDA-Public Use
  Company Number: 315330

PATIENT
  Sex: Male
  Weight: 92.5 kg

DRUGS (1)
  1. VICTOZA [Suspect]
     Indication: WEIGHT CONTROL
     Dosage: 1.2 MG, QD, SUBCUTANEOUS ; 0.6 MG, QD, SUBCUTANEOUS
     Route: 058
     Dates: start: 20100918

REACTIONS (7)
  - BLOOD GLUCOSE INCREASED [None]
  - DECREASED APPETITE [None]
  - FATIGUE [None]
  - FEELING ABNORMAL [None]
  - FLATULENCE [None]
  - GASTROOESOPHAGEAL REFLUX DISEASE [None]
  - NAUSEA [None]
